FAERS Safety Report 9878713 (Version 2)
Quarter: 2014Q1

REPORT INFORMATION
  Report Type: Spontaneous
  Country: US (occurrence: US)
  Receive Date: 20140206
  Receipt Date: 20140313
  Transmission Date: 20141002
  Serious: No
  Sender: FDA-Public Use
  Company Number: US-009507513-1402USA001162

PATIENT
  Sex: Female
  Weight: 68.27 kg

DRUGS (5)
  1. ZEGERID OTC CAPSULES [Suspect]
     Indication: GASTROOESOPHAGEAL REFLUX DISEASE
     Dosage: 40 MG, QD
     Route: 048
     Dates: start: 201305
  2. XANAX [Concomitant]
     Indication: ANXIETY
     Dosage: UNK, UNKNOWN
  3. XANAX [Concomitant]
     Indication: DEPRESSION
  4. FLUOXETINE [Concomitant]
     Indication: ANXIETY
     Dosage: 20 MG, UNKNOWN
  5. FLUOXETINE [Concomitant]
     Indication: DEPRESSION

REACTIONS (4)
  - Overdose [Unknown]
  - Incorrect drug administration duration [Unknown]
  - Off label use [Unknown]
  - Product physical issue [Unknown]
